FAERS Safety Report 7605323-0 (Version None)
Quarter: 2011Q3

REPORT INFORMATION
  Report Type: 
  Country: None (occurrence: None)
  Receive Date: 20110705
  Receipt Date: 20110620
  Transmission Date: 20111222
  Serious: Yes (Hospitalization)
  Sender: FDA-Public Use
  Company Number: 1000021817

PATIENT
  Age: 29 Year
  Sex: Male

DRUGS (3)
  1. OXAZEPAM [Suspect]
  2. ACAMPROSATE CALCIUM [Suspect]
     Dosage: (333 MG),ORAL
     Route: 048
  3. ALCOHOL (ETHANOL) [Suspect]

REACTIONS (1)
  - POISONING DELIBERATE [None]
